FAERS Safety Report 4335915-6 (Version None)
Quarter: 2004Q2

REPORT INFORMATION
  Report Type: 
  Country: None (occurrence: None)
  Receive Date: 20040408
  Receipt Date: 20040402
  Transmission Date: 20050107
  Serious: Yes (Hospitalization)
  Sender: FDA-Public Use
  Company Number: 04-04-0494

PATIENT
  Age: 36 Year
  Sex: Male

DRUGS (2)
  1. BACLOFEN [Suspect]
     Indication: MUSCLE SPASTICITY
     Dosage: 10MG HS ORAL
     Route: 048
  2. AMITRIPTYLINE HCL [Concomitant]

REACTIONS (5)
  - AUTONOMIC NERVOUS SYSTEM IMBALANCE [None]
  - BLOOD CREATINE PHOSPHOKINASE INCREASED [None]
  - DISORIENTATION [None]
  - DRUG WITHDRAWAL SYNDROME [None]
  - MUSCLE RIGIDITY [None]
